FAERS Safety Report 14147533 (Version 1)
Quarter: 2017Q4

REPORT INFORMATION
  Report Type: Spontaneous
  Country: US (occurrence: US)
  Receive Date: 20171031
  Receipt Date: 20171031
  Transmission Date: 20180321
  Serious: No
  Sender: FDA-Public Use
  Company Number: US-SHIRE-US201719737

PATIENT
  Sex: Female

DRUGS (1)
  1. GATTEX [Suspect]
     Active Substance: TEDUGLUTIDE\WATER
     Indication: SHORT-BOWEL SYNDROME
     Dosage: 4.8 MG, 1X/DAY:QD
     Route: 058
     Dates: start: 2015

REACTIONS (5)
  - Injection site pain [Unknown]
  - Nausea [Unknown]
  - Frequent bowel movements [Unknown]
  - Night sweats [Unknown]
  - Peripheral swelling [Unknown]
